FAERS Safety Report 14487730 (Version 1)
Quarter: 2018Q1

REPORT INFORMATION
  Report Type: Spontaneous
  Country: US (occurrence: US)
  Receive Date: 20180205
  Receipt Date: 20180205
  Transmission Date: 20180509
  Serious: Yes (Hospitalization)
  Sender: FDA-Public Use
  Company Number: PHEH2018US003152

PATIENT
  Age: 56 Year
  Sex: Female
  Weight: 83.45 kg

DRUGS (1)
  1. NITROFURANTOIN CAPSULES USP [Suspect]
     Active Substance: NITROFURANTOIN
     Indication: URINARY TRACT INFECTION
     Dosage: 100 MG, BID
     Route: 048
     Dates: start: 20180110, end: 20180116

REACTIONS (15)
  - Burning sensation [Not Recovered/Not Resolved]
  - Feeling cold [Unknown]
  - Joint swelling [Recovering/Resolving]
  - Erythema [Unknown]
  - Pyrexia [Recovered/Resolved]
  - Headache [Unknown]
  - Influenza like illness [Unknown]
  - Rash [Recovering/Resolving]
  - Joint stiffness [Unknown]
  - Chills [Recovered/Resolved]
  - Arthralgia [Recovering/Resolving]
  - Headache [Recovered/Resolved]
  - Gait inability [Recovering/Resolving]
  - Chills [Unknown]
  - Pyrexia [Recovered/Resolved]

NARRATIVE: CASE EVENT DATE: 20180117
